FAERS Safety Report 16123919 (Version 1)
Quarter: 2019Q1

REPORT INFORMATION
  Report Type: Spontaneous
  Country: CH (occurrence: CH)
  Receive Date: 20190327
  Receipt Date: 20190327
  Transmission Date: 20190418
  Serious: Yes (Other)
  Sender: FDA-Public Use
  Company Number: CH-PFIZER INC-2019126048

PATIENT
  Age: 17 Year
  Sex: Female

DRUGS (14)
  1. PARACETAMOL [Concomitant]
     Active Substance: ACETAMINOPHEN
     Dosage: UNK
     Dates: start: 201809
  2. DEXKETOPROFENE [Concomitant]
     Dosage: UNK
     Dates: start: 20190309, end: 20190311
  3. OXAZEPAM. [Suspect]
     Active Substance: OXAZEPAM
     Dosage: 15 MG, 1X/DAY (REFUSED BY PATIENT)
     Route: 048
     Dates: start: 20190309
  4. HYDROXYZINE [Suspect]
     Active Substance: HYDROXYZINE HYDROCHLORIDE
     Dosage: 25 MG, 1X/DAY
     Route: 048
     Dates: start: 201811
  5. LYRICA [Suspect]
     Active Substance: PREGABALIN
     Dosage: 200 MG, 3X/DAY
     Route: 048
     Dates: start: 20190222
  6. IRON [Concomitant]
     Active Substance: IRON
     Dosage: UNK
     Dates: start: 20190223
  7. TRAMADOL. [Concomitant]
     Active Substance: TRAMADOL
     Dosage: UNK
     Dates: start: 20190313
  8. TIZANIDINE. [Suspect]
     Active Substance: TIZANIDINE
     Dosage: 4 MG, 1X/DAY
     Route: 048
     Dates: start: 20190222
  9. HYDROMORPHONE [Concomitant]
     Active Substance: HYDROMORPHONE
     Dosage: UNK, AS NEEDED (AS NECESSARY)
     Dates: start: 20190210
  10. MACROGOL [Concomitant]
     Active Substance: POLYETHYLENE GLYCOLS
     Dosage: UNK
     Dates: start: 201809
  11. LIDOCAINE. [Concomitant]
     Active Substance: LIDOCAINE
     Dosage: UNK
     Dates: start: 20190306
  12. ENOXAPARIN [Concomitant]
     Active Substance: ENOXAPARIN
     Dosage: UNK
     Dates: start: 20190205
  13. ESOMEPRAZOLE MAGNESIUM. [Concomitant]
     Active Substance: ESOMEPRAZOLE MAGNESIUM
     Dosage: UNK
     Dates: start: 201809
  14. DICLOFENAC [Concomitant]
     Active Substance: DICLOFENAC
     Dosage: UNK
     Dates: start: 20190311

REACTIONS (3)
  - Insomnia [Not Recovered/Not Resolved]
  - Drug effect incomplete [Unknown]
  - Abnormal behaviour [Not Recovered/Not Resolved]

NARRATIVE: CASE EVENT DATE: 20190307
